FAERS Safety Report 5018014-X (Version None)
Quarter: 2006Q2

REPORT INFORMATION
  Report Type: 
  Country: None (occurrence: None)
  Receive Date: 20060605
  Receipt Date: 20060517
  Transmission Date: 20061013
  Serious: Yes (Other)
  Sender: FDA-Public Use
  Company Number: US-AVENTIS-200614532US

PATIENT
  Sex: Male
  Weight: 97.7 kg

DRUGS (8)
  1. LANTUS [Suspect]
     Dosage: DOSE UNIT: UNITS
  2. DRUG USED IN DIABETES [Suspect]
  3. ACTOS [Concomitant]
     Dosage: DOSE: UNK
  4. COZAAR [Concomitant]
     Dosage: DOSE: UNK
  5. DOXYCYCLINE [Concomitant]
     Dosage: DOSE: UNK
     Dates: end: 20060501
  6. STARLIX [Concomitant]
     Dosage: DOSE: UNK
  7. ASACOL [Concomitant]
     Dosage: DOSE: UNK
  8. LIPITOR [Concomitant]
     Dosage: DOSE: UNK

REACTIONS (9)
  - APATHY [None]
  - BLOOD GLUCOSE ABNORMAL [None]
  - BLOOD GLUCOSE INCREASED [None]
  - CEREBROVASCULAR ACCIDENT [None]
  - COLITIS [None]
  - HERPES ZOSTER [None]
  - INFECTION [None]
  - NUCLEAR MAGNETIC RESONANCE IMAGING ABNORMAL [None]
  - PERSONALITY CHANGE [None]
